FAERS Safety Report 15128760 (Version 1)
Quarter: 2018Q3

REPORT INFORMATION
  Report Type: Spontaneous
  Country: US (occurrence: US)
  Receive Date: 20180711
  Receipt Date: 20180711
  Transmission Date: 20181010
  Serious: Yes (Hospitalization, Other)
  Sender: FDA-Public Use
  Company Number: US-VISTAPHARM, INC.-VER201807-000735

PATIENT
  Age: 29 Year
  Sex: Male

DRUGS (6)
  1. IPRATROPIUM [Concomitant]
     Active Substance: IPRATROPIUM
     Indication: RESPIRATORY ACIDOSIS
  2. METHYLPREDNISOLONE. [Concomitant]
     Active Substance: METHYLPREDNISOLONE
     Indication: RESPIRATORY ACIDOSIS
  3. METHYLPREDNISOLONE. [Concomitant]
     Active Substance: METHYLPREDNISOLONE
     Indication: ASTHMA
     Dosage: UNKOWN
     Route: 042
  4. IPRATROPIUM [Concomitant]
     Active Substance: IPRATROPIUM
     Indication: ASTHMA
     Dosage: UNKNOWN (NEBULIZER)
  5. ALBUTEROL. [Suspect]
     Active Substance: ALBUTEROL
     Indication: ASTHMA
     Dosage: AS NEEDED (NEBULIZER)
  6. ALBUTEROL. [Suspect]
     Active Substance: ALBUTEROL
     Indication: RESPIRATORY ACIDOSIS

REACTIONS (1)
  - Lactic acidosis [Recovering/Resolving]
